FAERS Safety Report 10975694 (Version 2)
Quarter: 2015Q2

REPORT INFORMATION
  Report Type: Spontaneous
  Country: DE (occurrence: DE)
  Receive Date: 20150401
  Receipt Date: 20150501
  Transmission Date: 20150821
  Serious: Yes (Hospitalization)
  Sender: FDA-Public Use
  Company Number: DE-TEVA-551407GER

PATIENT
  Age: 66 Year
  Sex: Female

DRUGS (7)
  1. TILIDINE, NALOXONE [Suspect]
     Active Substance: NALOXONE HYDROCHLORIDE\TILIDINE HYDROCHLORIDE
     Indication: PROCTALGIA
     Route: 065
  2. HYDROMORPHONE [Suspect]
     Active Substance: HYDROMORPHONE
     Indication: PROCTALGIA
     Route: 065
  3. FENTANYL. [Suspect]
     Active Substance: FENTANYL
     Indication: PROCTALGIA
     Dosage: 1600 MCG/DOSE UP TO A MAX DAILY DOSE OF 20 LOZENGES; ONLY DURING WAKING HOURS
     Route: 048
  4. FENTANYL. [Suspect]
     Active Substance: FENTANYL
     Indication: PROCTALGIA
     Dosage: 400-600 MCG/DOSE (INITIAL DOSE); LATER INCREASED TO 1600MCG/DOSE FOR UP TO 20 DOSES/DAY
     Route: 048
  5. MORPHINE [Suspect]
     Active Substance: MORPHINE
     Indication: PROCTALGIA
     Dosage: AS NEEDED; MAXIMUM DAILY DOSE 400MG
     Route: 065
  6. OXYCODONE [Suspect]
     Active Substance: OXYCODONE
     Indication: PROCTALGIA
     Route: 065
  7. TRIAZOLAM. [Suspect]
     Active Substance: TRIAZOLAM
     Indication: PROCTALGIA
     Dosage: 0.25MG; NIGHT-TIME USE
     Route: 065

REACTIONS (3)
  - Drug dependence [Unknown]
  - Drug tolerance [Unknown]
  - Substance abuse [Unknown]
